FAERS Safety Report 13275026 (Version 3)
Quarter: 2017Q4

REPORT INFORMATION
  Report Type: Spontaneous
  Country: ZA (occurrence: ZA)
  Receive Date: 20170227
  Receipt Date: 20171228
  Transmission Date: 20180320
  Serious: Yes (Death, Life-Threatening, Hospitalization, Other)
  Sender: FDA-Public Use
  Company Number: ZA-BAUSCH-BL-2017-004874

PATIENT
  Age: 19 Year
  Sex: Female

DRUGS (1)
  1. METFORMIN [Suspect]
     Active Substance: METFORMIN HYDROCHLORIDE
     Indication: PRODUCT USED FOR UNKNOWN INDICATION
     Dosage: FULL PACK
     Route: 048
     Dates: start: 20150412

REACTIONS (9)
  - Cardiac arrest [Unknown]
  - Blood creatinine increased [Unknown]
  - Intentional overdose [Fatal]
  - Metabolic acidosis [Fatal]
  - Tachypnoea [Unknown]
  - Hypoglycaemia [Unknown]
  - Coma scale abnormal [Not Recovered/Not Resolved]
  - Electrocardiogram QT prolonged [Unknown]
  - Hypotension [Fatal]

NARRATIVE: CASE EVENT DATE: 20150412
